FAERS Safety Report 16452668 (Version 1)
Quarter: 2019Q2

REPORT INFORMATION
  Report Type: Spontaneous
  Country: US (occurrence: US)
  Receive Date: 20190619
  Receipt Date: 20190619
  Transmission Date: 20190711
  Serious: Yes (Other)
  Sender: FDA-Public Use
  Company Number: US-BAUSCH-BL-2019-017474

PATIENT
  Age: 56 Year
  Sex: Female

DRUGS (8)
  1. IRINOTECAN [Suspect]
     Active Substance: IRINOTECAN
     Indication: DUCTAL ADENOCARCINOMA OF PANCREAS
  2. IRINOTECAN [Suspect]
     Active Substance: IRINOTECAN
     Indication: METASTASES TO LIVER
     Dosage: CYCLICAL
     Route: 065
  3. FOLINIC ACID [Suspect]
     Active Substance: LEUCOVORIN
     Indication: DUCTAL ADENOCARCINOMA OF PANCREAS
     Dosage: CYCLICAL
     Route: 065
  4. FOLINIC ACID [Suspect]
     Active Substance: LEUCOVORIN
     Indication: METASTASES TO LIVER
  5. 5-FLUOROURACIL [Suspect]
     Active Substance: FLUOROURACIL
     Indication: DUCTAL ADENOCARCINOMA OF PANCREAS
  6. 5-FLUOROURACIL [Suspect]
     Active Substance: FLUOROURACIL
     Indication: METASTASES TO LIVER
     Dosage: CYCLICAL
     Route: 065
  7. OXALIPLATIN. [Suspect]
     Active Substance: OXALIPLATIN
     Indication: METASTASES TO LIVER
     Dosage: CYCLICAL
     Route: 065
  8. OXALIPLATIN. [Suspect]
     Active Substance: OXALIPLATIN
     Indication: DUCTAL ADENOCARCINOMA OF PANCREAS

REACTIONS (5)
  - Toxicity to various agents [Unknown]
  - Clostridium difficile colitis [Unknown]
  - Mucosal inflammation [Unknown]
  - Vomiting [Unknown]
  - Diarrhoea [Unknown]
